FAERS Safety Report 12230356 (Version 3)
Quarter: 2016Q2

REPORT INFORMATION
  Report Type: Spontaneous
  Country: US (occurrence: US)
  Receive Date: 20160401
  Receipt Date: 20160523
  Transmission Date: 20160815
  Serious: Yes (Disabling)
  Sender: FDA-Public Use
  Company Number: US-JNJFOC-20160221371

PATIENT
  Sex: Female
  Weight: 74.84 kg

DRUGS (7)
  1. ULTRAM ER [Suspect]
     Active Substance: TRAMADOL HYDROCHLORIDE
     Indication: NEUROPATHY PERIPHERAL
     Dosage: ONCE DAILY/
     Route: 048
  2. ULTRAM ER [Suspect]
     Active Substance: TRAMADOL HYDROCHLORIDE
     Indication: NEUROPATHY PERIPHERAL
     Route: 048
     Dates: start: 2015
  3. SYNTHROID [Concomitant]
     Active Substance: LEVOTHYROXINE SODIUM
     Indication: HYPOTHYROIDISM
     Dosage: ON SYNTHROID FOR 30 YEARS OR MORE
     Route: 048
  4. CYTOMEL [Concomitant]
     Active Substance: LIOTHYRONINE SODIUM
     Indication: THYROID DISORDER
     Dosage: FOR 30 YEARS OR MORE
     Route: 048
  5. ULTRAM ER [Suspect]
     Active Substance: TRAMADOL HYDROCHLORIDE
     Indication: NEUROPATHY PERIPHERAL
     Route: 048
  6. ULTRAM ER [Suspect]
     Active Substance: TRAMADOL HYDROCHLORIDE
     Indication: NEUROPATHY PERIPHERAL
     Dosage: ONCE DAILY
     Route: 048
  7. CRESTOR [Concomitant]
     Active Substance: ROSUVASTATIN CALCIUM
     Indication: BLOOD CHOLESTEROL
     Dosage: ONCE DAILY
     Route: 048
     Dates: start: 2013

REACTIONS (5)
  - Somnolence [Recovered/Resolved]
  - Deafness [Not Recovered/Not Resolved]
  - Disturbance in attention [Recovered/Resolved]
  - Pain [Unknown]
  - Adverse drug reaction [Unknown]
